FAERS Safety Report 5287737-X (Version None)
Quarter: 2007Q2

REPORT INFORMATION
  Report Type: 
  Country: None (occurrence: None)
  Receive Date: 20070402
  Receipt Date: 20070402
  Transmission Date: 20071010
  Serious: Yes (Life-Threatening)
  Sender: FDA-Public Use
  Company Number: None

PATIENT

DRUGS (2)
  1. FUROSEMIDE [Suspect]
     Indication: DIURETIC THERAPY
     Dosage: 40MG  IV
     Route: 042
     Dates: start: 20070320
  2. MIDAZOLAM  5MG/5ML  HOSPIRA [Suspect]
     Indication: SEDATION
     Dosage: 5MG  IV
     Route: 042
     Dates: start: 20070320

REACTIONS (1)
  - MEDICATION ERROR [None]
